FAERS Safety Report 7551567-6 (Version None)
Quarter: 2011Q2

REPORT INFORMATION
  Report Type: 
  Country: None (occurrence: None)
  Receive Date: 20110616
  Receipt Date: 20110613
  Transmission Date: 20111010
  Serious: Yes (Hospitalization, Other)
  Sender: FDA-Public Use
  Company Number: GB-ABBOTT-11P-167-0731177-00

PATIENT
  Sex: Female

DRUGS (10)
  1. KALETRA [Suspect]
     Dates: start: 20101201
  2. RANITIDINE [Concomitant]
     Indication: ANTIALLERGIC THERAPY
  3. KALETRA [Suspect]
     Indication: HIV INFECTION
     Dates: start: 20040201, end: 20100601
  4. ANADIN [Suspect]
     Indication: PRODUCT USED FOR UNKNOWN INDICATION
  5. TRUVADA [Suspect]
     Dates: start: 20110101, end: 20110201
  6. NORVIR [Suspect]
     Indication: HIV INFECTION
     Dates: start: 20100901, end: 20110201
  7. LEVOTHYROXINE SODIUM [Suspect]
     Indication: PRODUCT USED FOR UNKNOWN INDICATION
  8. DARUNAVIR ETHANOLATE [Suspect]
     Indication: HIV INFECTION
     Dates: end: 20110201
  9. TRUVADA [Suspect]
     Indication: HIV INFECTION
  10. ANTIHISTAMINES [Concomitant]
     Indication: ANTIALLERGIC THERAPY

REACTIONS (3)
  - URTICARIA [None]
  - DYSPNOEA [None]
  - ANGIOEDEMA [None]
